FAERS Safety Report 12247437 (Version 1)
Quarter: 2020Q3

REPORT INFORMATION
  Report Type: Report from Study
  Country: CA (occurrence: CA)
  Receive Date: 20160407
  Receipt Date: 20160407
  Transmission Date: 20201104
  Serious: Yes (Other)
  Sender: FDA-Public Use
  Company Number: CA-CELGENE-CAN-2016037078

PATIENT
  Age: 66 Year
  Sex: Male
  Weight: 91.3 kg

DRUGS (2)
  1. CEDIRANIB. [Suspect]
     Active Substance: CEDIRANIB
     Indication: FOLLICULAR THYROID CANCER
     Route: 048
     Dates: start: 20140610
  2. REVLIMID [Suspect]
     Active Substance: LENALIDOMIDE
     Indication: FOLLICULAR THYROID CANCER
     Dosage: 15 MILLIGRAM
     Route: 048
     Dates: start: 20140610

REACTIONS (2)
  - Gallbladder rupture [Recovered/Resolved]
  - Cholecystitis [Recovered/Resolved]

NARRATIVE: CASE EVENT DATE: 20140930
